FAERS Safety Report 6147914-2 (Version None)
Quarter: 2009Q2

REPORT INFORMATION
  Report Type: 
  Country: None (occurrence: None)
  Receive Date: 20090403
  Receipt Date: 20090324
  Transmission Date: 20091009
  Serious: Yes (Death, Hospitalization)
  Sender: FDA-Public Use
  Company Number: 20084588

PATIENT
  Age: 79 Year
  Sex: Female

DRUGS (8)
  1. BACLOFEN [Suspect]
     Indication: MUSCLE SPASTICITY
     Dosage: 50-60 MCG, DAILY, INTRATHECAL
     Route: 037
     Dates: start: 20070820
  2. BISOLVEN [Concomitant]
  3. JUVELA N [Concomitant]
  4. CYANOCOBALAMIN [Concomitant]
  5. DIAZEPAM [Concomitant]
  6. SELBEX [Concomitant]
  7. SYMMETRIL [Concomitant]
  8. BUFFERIN [Concomitant]

REACTIONS (2)
  - APHASIA [None]
  - CEREBRAL HAEMORRHAGE [None]
